FAERS Safety Report 6768301-X (Version None)
Quarter: 2010Q2

REPORT INFORMATION
  Report Type: 
  Country: None (occurrence: None)
  Receive Date: 20100610
  Receipt Date: 20100527
  Transmission Date: 20101027
  Serious: Yes (Hospitalization)
  Sender: FDA-Public Use
  Company Number: THQ2010A01566

PATIENT
  Age: 48 Year
  Sex: Female

DRUGS (2)
  1. ACTOS [Suspect]
     Indication: TYPE 2 DIABETES MELLITUS
     Dosage: 45 MG (45 MG, 1 IN 1 D) PER ORAL
     Route: 048
     Dates: start: 20091201, end: 20100501
  2. METFORMIN [Concomitant]

REACTIONS (1)
  - VERTIGO [None]
